FAERS Safety Report 25120473 (Version 1)
Quarter: 2025Q1

REPORT INFORMATION
  Report Type: Spontaneous
  Country: FR (occurrence: FR)
  Receive Date: 20250325
  Receipt Date: 20250325
  Transmission Date: 20250409
  Serious: Yes (Hospitalization)
  Sender: MERCK SHARP & DOHME LLC
  Company Number: None

PATIENT
  Age: 66 Year
  Sex: Female
  Weight: 59.5 kg

DRUGS (14)
  1. SIVEXTRO [Suspect]
     Active Substance: TEDIZOLID PHOSPHATE
     Indication: Osteitis
     Route: 048
     Dates: start: 20250207, end: 20250217
  2. SIVEXTRO [Suspect]
     Active Substance: TEDIZOLID PHOSPHATE
     Indication: Osteitis
     Route: 048
     Dates: start: 20250220
  3. SIVEXTRO [Suspect]
     Active Substance: TEDIZOLID PHOSPHATE
     Indication: Osteitis
     Route: 048
     Dates: start: 20241128, end: 20250102
  4. FLUCONAZOLE [Concomitant]
     Active Substance: FLUCONAZOLE
     Indication: Osteitis
     Dosage: LOADING DOSE
     Route: 048
     Dates: start: 20241128, end: 20241128
  5. FLUCONAZOLE [Concomitant]
     Active Substance: FLUCONAZOLE
     Indication: Osteitis
     Route: 048
     Dates: start: 20241129
  6. RIFAMPIN [Concomitant]
     Active Substance: RIFAMPIN
     Indication: Osteitis
     Route: 048
     Dates: start: 20250207
  7. SKENAN L.P. 10 mg, prolonged release microgranules in capsule [Concomitant]
     Indication: Pain
     Route: 048
  8. FLUOXETINE [Suspect]
     Active Substance: FLUOXETINE HYDROCHLORIDE
     Indication: Depression
     Dosage: 1/J
     Route: 048
     Dates: start: 20241101
  9. NEFOPAM HYDROCHLORIDE [Concomitant]
     Active Substance: NEFOPAM HYDROCHLORIDE
     Indication: Pain
     Route: 048
  10. AMITRIPTYLINE HYDROCHLORIDE [Concomitant]
     Active Substance: AMITRIPTYLINE HYDROCHLORIDE
     Indication: Anxiety
     Route: 048
  11. ZOLPIDEM TARTRATE [Concomitant]
     Active Substance: ZOLPIDEM TARTRATE
     Indication: Sleep disorder
     Dosage: AT BEDTIME
     Route: 048
  12. LOVENOX 4000 IU anti-Xa/0.4 ml, solution for injection in pre-fille... [Concomitant]
     Indication: Thrombosis prophylaxis
     Route: 048
  13. ACTISKENAN 5 mg, orodispersible tablet [Concomitant]
     Indication: Pain
     Route: 048
  14. ACETAMINOPHEN [Concomitant]
     Active Substance: ACETAMINOPHEN
     Indication: Pain
     Route: 048

REACTIONS (1)
  - Posterior reversible encephalopathy syndrome [Recovering/Resolving]

NARRATIVE: CASE EVENT DATE: 20250217
